FAERS Safety Report 15316965 (Version 9)
Quarter: 2019Q1

REPORT INFORMATION
  Report Type: Spontaneous
  Country: US (occurrence: US)
  Receive Date: 20180824
  Receipt Date: 20190225
  Transmission Date: 20190417
  Serious: Yes (Hospitalization)
  Sender: FDA-Public Use
  Company Number: US-BIOMARINAP-US-2018-119555

PATIENT
  Sex: Male
  Weight: 31.97 kg

DRUGS (1)
  1. VIMIZIM [Suspect]
     Active Substance: ELOSULFASE ALFA
     Indication: MUCOPOLYSACCHARIDOSIS IV
     Dosage: 70 MILLIGRAM, QW
     Route: 042
     Dates: start: 20141014

REACTIONS (9)
  - Pyrexia [Recovered/Resolved]
  - Rhinorrhoea [Unknown]
  - Incisional drainage [Unknown]
  - Osteomyelitis [Unknown]
  - Chills [Unknown]
  - Neutropenia [Unknown]
  - Infection [Unknown]
  - Oropharyngeal pain [Unknown]
  - Erythema [Unknown]
